FAERS Safety Report 6781270-1 (Version None)
Quarter: 2010Q2

REPORT INFORMATION
  Report Type: 
  Country: None (occurrence: None)
  Receive Date: 20100621
  Receipt Date: 20100608
  Transmission Date: 20101027
  Serious: Yes (Hospitalization)
  Sender: FDA-Public Use
  Company Number: PHHY2010US34001

PATIENT
  Sex: Female
  Weight: 69.09 kg

DRUGS (25)
  1. EXJADE [Suspect]
     Indication: SERUM FERRITIN INCREASED
     Dosage: 1000 MG, QD
     Route: 048
     Dates: start: 20100405
  2. EXJADE [Suspect]
     Indication: IRON OVERLOAD
     Dosage: 500 MG, QD
     Route: 048
  3. PRILOSEC [Concomitant]
     Indication: GASTROOESOPHAGEAL REFLUX DISEASE
     Dosage: 20 MG DAILY
  4. ZANTAC [Concomitant]
     Indication: GASTROOESOPHAGEAL REFLUX DISEASE
     Dosage: 150 MG , AT BED TIME
  5. ULTRAM [Concomitant]
     Indication: FIBROMYALGIA
     Dosage: 300 MG, QD
  6. MUCINEX [Concomitant]
     Indication: HYPERSENSITIVITY
     Dosage: 600 MG, BID
  7. BUPROPION HYDROCHLORIDE [Concomitant]
     Indication: DEPRESSION
     Dosage: 300 MG IN MORNING, 150 MG IN EVENING
  8. LOPID [Concomitant]
     Dosage: 600 MG, BID
  9. MICARDIS [Concomitant]
     Dosage: 1/2 TABLET DAILY
  10. CALCIUM WITH VITAMIN D [Concomitant]
     Indication: OSTEOPOROSIS
     Dosage: 600 MG, BID
  11. GAS-X [Concomitant]
     Dosage: 125 MG, BID
  12. ONE A DAY [Suspect]
  13. ALLEGRA [Concomitant]
     Indication: HYPERSENSITIVITY
     Dosage: 180 MG, QD
  14. FIBERCOM [Concomitant]
     Dosage: 1 TABLET, BID
  15. COLACE [Concomitant]
     Dosage: 100 MG, BID
  16. ESTROVEN EXTRA STRENGTH [Concomitant]
     Indication: HOT FLUSH
     Dosage: 1 TABLET/ DAY
  17. GLUCOSAMINE W/CHONDROITIN [Concomitant]
     Indication: OSTEOPOROSIS
     Dosage: 1 TABLET, BID
  18. TYLENOL (CAPLET) [Concomitant]
     Indication: ARTHRITIS
     Dosage: 500 MG, TWO CAPLETS Q6H
  19. RECLAST [Concomitant]
     Indication: OSTEOPOROSIS
     Dosage: ONCE PER YEAR
  20. PROBIOTICS (MICROORGANISMS W/PROBIOTIC ACTION) [Concomitant]
     Dosage: 1 OR 2 CAPSULES/ DAY
  21. SAVELLA [Concomitant]
     Dosage: 25 MG, QD
  22. ZOFRAN [Concomitant]
     Indication: NAUSEA
     Dosage: 4 MG, PRN
  23. FLUTICASONE PROPIONATE [Concomitant]
     Indication: HYPERSENSITIVITY
     Dosage: 1 SPRAY IN EACH NOSTRIL EVERY OTHER DAY
  24. ANUSOL HC [Concomitant]
     Dosage: 25 MG, PRN
  25. TRAMADOL HYDROCHLORIDE [Concomitant]
     Dosage: 50 MG, PRN

REACTIONS (2)
  - RASH GENERALISED [None]
  - UROSEPSIS [None]
